FAERS Safety Report 6748626-4 (Version None)
Quarter: 2010Q2

REPORT INFORMATION
  Report Type: 
  Country: None (occurrence: None)
  Receive Date: 20100601
  Receipt Date: 20100520
  Transmission Date: 20101027
  Serious: Yes (Other)
  Sender: FDA-Public Use
  Company Number: CA-JNJFOC-20100509254

PATIENT
  Sex: Male
  Weight: 100 kg

DRUGS (5)
  1. REMICADE [Suspect]
     Indication: CROHN'S DISEASE
     Route: 042
  2. IMURAN [Concomitant]
     Route: 048
  3. MESALAMINE [Concomitant]
     Route: 048
  4. ACTONEL [Concomitant]
     Route: 048
  5. VITAMIN D [Concomitant]
     Route: 048

REACTIONS (3)
  - HEART RATE IRREGULAR [None]
  - INFUSION RELATED REACTION [None]
  - RASH [None]
